FAERS Safety Report 7546694-3 (Version None)
Quarter: 2011Q2

REPORT INFORMATION
  Report Type: 
  Country: None (occurrence: None)
  Receive Date: 20110614
  Receipt Date: 20110524
  Transmission Date: 20111010
  Serious: Yes (Hospitalization)
  Sender: FDA-Public Use
  Company Number: A0794769A

PATIENT
  Age: 60 Year
  Sex: Male
  Weight: 100 kg

DRUGS (1)
  1. AVANDIA [Suspect]
     Route: 048
     Dates: start: 20050101, end: 20060101

REACTIONS (6)
  - CEREBROVASCULAR ACCIDENT [None]
  - ERECTILE DYSFUNCTION [None]
  - ATRIAL FIBRILLATION [None]
  - MIGRAINE [None]
  - CARDIAC FAILURE CONGESTIVE [None]
  - MYOCARDIAL INFARCTION [None]
